FAERS Safety Report 6464374-2 (Version None)
Quarter: 2009Q4

REPORT INFORMATION
  Report Type: 
  Country: None (occurrence: None)
  Receive Date: 20091118
  Receipt Date: 20090716
  Transmission Date: 20100525
  Serious: Yes (Hospitalization)
  Sender: FDA-Public Use
  Company Number: 2008BI034327

PATIENT
  Age: 67 Year
  Sex: Male

DRUGS (1)
  1. TYSABRI [Suspect]
     Indication: MULTIPLE SCLEROSIS
     Dosage: 300 MG;QM;IV
     Route: 042
     Dates: start: 20080904

REACTIONS (7)
  - ANXIETY [None]
  - APHASIA [None]
  - CONFUSIONAL STATE [None]
  - MEDICAL DEVICE COMPLICATION [None]
  - RESIDUAL URINE [None]
  - URETHRAL INJURY [None]
  - URINARY TRACT INFECTION [None]
